FAERS Safety Report 7742980-2 (Version None)
Quarter: 2011Q3

REPORT INFORMATION
  Report Type: 
  Country: None (occurrence: None)
  Receive Date: 20110912
  Receipt Date: 20110901
  Transmission Date: 20111222
  Serious: Yes (Other)
  Sender: FDA-Public Use
  Company Number: SE-JNJFOC-20110807310

PATIENT
  Age: 45 Year
  Sex: Female

DRUGS (2)
  1. SULFASALAZINE [Suspect]
     Indication: SPONDYLITIS
     Dosage: 500 MG DOSE
     Route: 048
     Dates: start: 20091020, end: 20110331
  2. REMICADE [Suspect]
     Indication: SPONDYLITIS
     Route: 042
     Dates: start: 20101105, end: 20110331

REACTIONS (2)
  - TRANSAMINASES INCREASED [None]
  - LIVER INJURY [None]
